FAERS Safety Report 10037197 (Version 1)
Quarter: 2014Q1

REPORT INFORMATION
  Report Type: Spontaneous
  Country: IN (occurrence: IN)
  Receive Date: 20140326
  Receipt Date: 20140326
  Transmission Date: 20141002
  Serious: Yes (Other)
  Sender: FDA-Public Use
  Company Number: PHHY2014IN034290

PATIENT
  Age: 27 Year
  Sex: Female

DRUGS (5)
  1. PHENYTOIN [Suspect]
     Indication: CONVULSION
     Dosage: 300 MG, UNK
     Route: 048
  2. PHENYTOIN [Interacting]
     Indication: CONVULSION
     Dosage: 100 MG, UNK
     Route: 042
  3. DICLOFENAC [Interacting]
  4. CEFTRIAXONE [Interacting]
  5. ALPRAZOLAM [Concomitant]
     Dosage: 0.5 MG, BID

REACTIONS (3)
  - Bradyarrhythmia [Recovered/Resolved]
  - Sinoatrial block [Recovered/Resolved]
  - Drug interaction [Unknown]
